FAERS Safety Report 14878744 (Version 2)
Quarter: 2018Q2

REPORT INFORMATION
  Report Type: Spontaneous
  Country: FR (occurrence: FR)
  Receive Date: 20180511
  Receipt Date: 20180511
  Transmission Date: 20180711
  Serious: Yes (Other)
  Sender: FDA-Public Use
  Company Number: FR-009507513-1805FRA003476

PATIENT
  Age: 1 Year
  Sex: Female
  Weight: 9 kg

DRUGS (1)
  1. SINGULAIR [Suspect]
     Active Substance: MONTELUKAST SODIUM
     Dosage: 4 MG, QD
     Route: 048
     Dates: start: 20180219, end: 20180303

REACTIONS (2)
  - Sleep terror [Recovered/Resolved]
  - Agitation [Recovered/Resolved]

NARRATIVE: CASE EVENT DATE: 20180226
